FAERS Safety Report 24090607 (Version 2)
Quarter: 2024Q3

REPORT INFORMATION
  Report Type: Spontaneous
  Country: CH (occurrence: CH)
  Receive Date: 20240715
  Receipt Date: 20240803
  Transmission Date: 20241016
  Serious: Yes (Hospitalization)
  Sender: TEVA
  Company Number: CH-TEVA-VS-3217270

PATIENT
  Age: 60 Year
  Sex: Male

DRUGS (2)
  1. AMIODARONE [Suspect]
     Active Substance: AMIODARONE
     Indication: Ventricular tachycardia
     Route: 065
  2. IODINE [Suspect]
     Active Substance: IODINE
     Indication: Diagnostic procedure
     Route: 065

REACTIONS (3)
  - Hypercalcaemia [Unknown]
  - Hyperthyroidism [Unknown]
  - Hyperthyroidism [Unknown]
